FAERS Safety Report 16745744 (Version 2)
Quarter: 2019Q4

REPORT INFORMATION
  Report Type: Spontaneous
  Country: US (occurrence: US)
  Receive Date: 20190827
  Receipt Date: 20191105
  Transmission Date: 20200122
  Serious: No
  Sender: FDA-Public Use
  Company Number: US-SA-2018SA206268

PATIENT
  Sex: Female
  Weight: 70.31 kg

DRUGS (4)
  1. AUBAGIO [Suspect]
     Active Substance: TERIFLUNOMIDE
     Indication: MULTIPLE SCLEROSIS
     Dosage: 14 MG, QD
     Route: 048
     Dates: start: 201603, end: 20191016
  2. BACLOFEN. [Concomitant]
     Active Substance: BACLOFEN
  3. BENADRYL [Concomitant]
     Active Substance: DIPHENHYDRAMINE HYDROCHLORIDE
  4. PROVENTIL HFA [SALBUTAMOL] [Concomitant]

REACTIONS (2)
  - Alopecia [Unknown]
  - Drug ineffective [Unknown]
